FAERS Safety Report 5679990-5 (Version None)
Quarter: 2008Q1

REPORT INFORMATION
  Report Type: 
  Country: None (occurrence: None)
  Receive Date: 20080325
  Receipt Date: 20080325
  Transmission Date: 20080703
  Serious: No
  Sender: FDA-Public Use
  Company Number: None

PATIENT
  Sex: Female

DRUGS (1)
  1. METHOTREXATE [Suspect]
     Dosage: 2.5MG PO
     Route: 048
     Dates: start: 20080318, end: 20080320

REACTIONS (1)
  - NERVOUS SYSTEM DISORDER [None]
